FAERS Safety Report 5698356-5 (Version None)
Quarter: 2008Q2

REPORT INFORMATION
  Report Type: 
  Country: None (occurrence: None)
  Receive Date: 20080403
  Receipt Date: 20080321
  Transmission Date: 20081010
  Serious: Yes (Congenital Anomaly, Other)
  Sender: FDA-Public Use
  Company Number: 2008-01982

PATIENT
  Age: 29 Week

DRUGS (8)
  1. ISONIAZID [Suspect]
     Indication: TUBERCULOSIS
     Dosage: TRANSPLACENTAL
     Route: 064
  2. SULFAMETHOXAZOLE/TRIMETHOPRIN UNKNOWN STRENGTH (WATSON LABORATORIES) ( [Suspect]
     Indication: TUBERCULOSIS
     Dosage: TRANSPLACENTAL
     Route: 064
  3. STAVUDINE [Suspect]
     Indication: ACUTE HIV INFECTION
     Dosage: TRANSPLACENTAL
     Route: 064
  4. LAMIVUDINE [Suspect]
     Indication: ACUTE HIV INFECTION
     Dosage: TRANSPLACENTAL
     Route: 064
  5. NEVIRAPINE [Suspect]
     Indication: ACUTE HIV INFECTION
     Dosage: TRANSPLACENTAL
     Route: 064
  6. RIFAMPICIN [Suspect]
     Indication: TUBERCULOSIS
  7. PYRAZINAMIDE [Suspect]
     Indication: TUBERCULOSIS
     Dosage: TRANSPLACENTAL
     Route: 064
  8. ETHAMBUTOL HYDROCHLORIDE [Suspect]
     Indication: TUBERCULOSIS
     Dosage: TRANSPLACENTAL
     Route: 064

REACTIONS (2)
  - DANDY-WALKER SYNDROME [None]
  - DRUG EXPOSURE DURING PREGNANCY [None]
